FAERS Safety Report 8437078-4 (Version None)
Quarter: 2012Q2

REPORT INFORMATION
  Report Type: 
  Country: None (occurrence: None)
  Receive Date: 20120614
  Receipt Date: 20120326
  Transmission Date: 20120825
  Serious: No
  Sender: FDA-Public Use
  Company Number: US-AMGEN-USASP2011044366

PATIENT
  Age: 58 Year
  Sex: Male
  Weight: 94.331 kg

DRUGS (6)
  1. PLAVIX [Concomitant]
     Dosage: UNK
  2. METOPROLOL TARTRATE [Concomitant]
     Dosage: UNK
  3. XGEVA [Suspect]
     Indication: PRODUCT USED FOR UNKNOWN INDICATION
     Dosage: 120 MG, Q6MO
     Dates: start: 20110622, end: 20110622
  4. SIMVASTATIN [Concomitant]
     Dosage: UNK
  5. LUPAREN [Concomitant]
     Dosage: UNK
  6. CASODEX [Concomitant]
     Dosage: UNK

REACTIONS (2)
  - PAIN [None]
  - BONE PAIN [None]
